FAERS Safety Report 20095244 (Version 2)
Quarter: 2021Q4

REPORT INFORMATION
  Report Type: Report from Study
  Country: US (occurrence: US)
  Receive Date: 20211122
  Receipt Date: 20211126
  Transmission Date: 20220303
  Serious: Yes (Life-Threatening, Hospitalization)
  Sender: FDA-Public Use
  Company Number: US-ViiV Healthcare Limited-US2021GSK237662

PATIENT
  Age: 61 Year
  Sex: Female
  Weight: 55 kg

DRUGS (5)
  1. CABOTEGRAVIR [Suspect]
     Active Substance: CABOTEGRAVIR
     Indication: HIV infection
     Dosage: 30 MG, QD
     Route: 048
     Dates: start: 20210924, end: 20211110
  2. VRC07-523LS [Suspect]
     Active Substance: VRC07-523LS
     Indication: HIV infection
     Dosage: 40 MG/KG, OTHER - ANTECUBITAL, RIGHT
     Route: 042
     Dates: start: 20211110
  3. EMTRICITABINE\TENOFOVIR ALAFENAMIDE FUMARATE [Concomitant]
     Active Substance: EMTRICITABINE\TENOFOVIR ALAFENAMIDE FUMARATE
     Indication: HIV infection
     Dosage: 200/20 MG, QD
     Route: 048
     Dates: start: 20210924, end: 20211110
  4. PAROXETINE [Concomitant]
     Active Substance: PAROXETINE
     Indication: Major depression
  5. BUPROPION [Concomitant]
     Active Substance: BUPROPION
     Indication: Major depression

REACTIONS (1)
  - Suicide attempt [Recovered/Resolved]

NARRATIVE: CASE EVENT DATE: 20211111
